FAERS Safety Report 10016395 (Version 2)
Quarter: 2014Q1

REPORT INFORMATION
  Report Type: Report from Study
  Country: CH (occurrence: CH)
  Receive Date: 20140317
  Receipt Date: 20140317
  Transmission Date: 20141002
  Serious: Yes (Hospitalization)
  Sender: FDA-Public Use
  Company Number: CH-CELGENEUS-151-21880-13031113

PATIENT
  Age: 73 Year
  Sex: Male
  Weight: 73.8 kg

DRUGS (22)
  1. REVLIMID [Suspect]
     Indication: LYMPHOMA
     Dosage: 10 MILLIGRAM
     Route: 048
     Dates: start: 20130218, end: 20130307
  2. REVLIMID [Suspect]
     Dosage: 5-20
     Route: 048
  3. REVLIMID [Suspect]
     Dosage: 10 MILLIGRAM
     Route: 048
     Dates: start: 20130319
  4. BENDAMUSTINE [Suspect]
     Indication: LYMPHOMA
     Route: 041
     Dates: start: 20130218, end: 20130219
  5. BENDAMUSTINE [Suspect]
     Route: 041
  6. BENDAMUSTINE [Suspect]
     Route: 041
  7. RITUXIMAB [Suspect]
     Indication: LYMPHOMA
     Route: 041
     Dates: start: 20130218
  8. RITUXIMAB [Suspect]
     Route: 041
  9. CO-AMOXICILLIN [Concomitant]
     Indication: ARTHRITIS
     Route: 065
  10. MORPHINE SULFATE [Concomitant]
     Indication: PRODUCT USED FOR UNKNOWN INDICATION
     Dosage: 10 MILLIGRAM
     Route: 048
  11. METO ZOROK [Concomitant]
     Indication: PRODUCT USED FOR UNKNOWN INDICATION
     Route: 048
  12. PANTOPRAZOL [Concomitant]
     Indication: PRODUCT USED FOR UNKNOWN INDICATION
     Dosage: 40 MILLIGRAM
     Route: 048
  13. BACTRIM FORTE [Concomitant]
     Indication: PRODUCT USED FOR UNKNOWN INDICATION
     Dosage: 960 MILLIGRAM
     Route: 048
  14. DALMADORM MITE [Concomitant]
     Indication: PRODUCT USED FOR UNKNOWN INDICATION
     Dosage: 15 MILLIGRAM
     Route: 048
  15. MOLAXOLE [Concomitant]
     Indication: PRODUCT USED FOR UNKNOWN INDICATION
     Route: 065
  16. FRAGMIN [Concomitant]
     Indication: PRODUCT USED FOR UNKNOWN INDICATION
     Dosage: U/0.6ML
     Route: 065
  17. ZOFRAN [Concomitant]
     Indication: PROPHYLAXIS
     Route: 048
  18. TAVEGYL [Concomitant]
     Indication: ALLERGY PROPHYLAXIS
     Route: 041
  19. ZANTIC [Concomitant]
     Indication: ALLERGY PROPHYLAXIS
     Route: 041
  20. DIPROPHOS [Concomitant]
     Indication: PRODUCT USED FOR UNKNOWN INDICATION
     Route: 065
  21. CARBOSTESIN [Concomitant]
     Indication: PRODUCT USED FOR UNKNOWN INDICATION
     Route: 065
  22. LIDOCAINE [Concomitant]
     Indication: PRODUCT USED FOR UNKNOWN INDICATION
     Dosage: 0.5-1 MG/KG/MIN
     Route: 065
     Dates: start: 20130308

REACTIONS (3)
  - Chondrocalcinosis pyrophosphate [Recovered/Resolved]
  - Pyrexia [Recovered/Resolved]
  - Ventricular tachycardia [Recovered/Resolved]
